FAERS Safety Report 6533021-3 (Version None)
Quarter: 2010Q1

REPORT INFORMATION
  Report Type: 
  Country: None (occurrence: None)
  Receive Date: 20100111
  Receipt Date: 20091228
  Transmission Date: 20100710
  Serious: Yes (Hospitalization, Disabling, Other)
  Sender: FDA-Public Use
  Company Number: JP-BRISTOL-MYERS SQUIBB COMPANY-14890768

PATIENT
  Age: 63 Year
  Sex: Female
  Weight: 46 kg

DRUGS (21)
  1. TAXOL [Suspect]
     Indication: BREAST CANCER
     Dosage: 27SEP07-28AUG08-IV
     Route: 041
     Dates: start: 20071015, end: 20071015
  2. KENALOG [Suspect]
     Indication: STOMATITIS
     Route: 061
     Dates: start: 20071211
  3. AVASTIN [Suspect]
     Indication: BREAST CANCER
     Dosage: 27SEP07-28AUG08 - IV
     Route: 041
     Dates: start: 20071015, end: 20090805
  4. ZANTAC [Suspect]
     Indication: BREAST CANCER
     Route: 041
     Dates: start: 20071015
  5. ZOMETA [Suspect]
     Indication: METASTASES TO BONE
     Route: 041
     Dates: start: 20050620, end: 20080825
  6. DEXART [Concomitant]
     Indication: BREAST CANCER
     Dosage: 15OCT07 TO 15OCT07 - 16MG/D, 29OCT07-UNK - 4MG/D
     Route: 041
     Dates: start: 20071015
  7. KYTRIL [Concomitant]
     Indication: BREAST CANCER
     Route: 041
     Dates: start: 20071015
  8. KYTRIL [Concomitant]
     Indication: PREMEDICATION
     Route: 041
     Dates: start: 20071015
  9. RESTAMIN [Concomitant]
     Indication: BREAST CANCER
     Route: 048
     Dates: start: 20071015
  10. RESTAMIN [Concomitant]
     Indication: PREMEDICATION
     Route: 048
     Dates: start: 20071015
  11. AMLODIN [Concomitant]
     Indication: HYPERTENSION
     Route: 048
     Dates: start: 20071226
  12. LENDORMIN [Concomitant]
     Indication: INSOMNIA
     Route: 048
  13. MAGNESIUM OXIDE [Concomitant]
     Indication: CONSTIPATION
     Route: 048
     Dates: start: 20080122
  14. ATORVASTATIN CALCIUM [Concomitant]
     Indication: HYPERLIPIDAEMIA
     Route: 048
     Dates: start: 20090427
  15. TRICHLORMETHIAZIDE [Concomitant]
     Indication: HYPERTENSION
     Route: 048
     Dates: start: 20091005
  16. VALSARTAN [Concomitant]
     Indication: HYPERTENSION
     Route: 048
     Dates: start: 20090908
  17. MILTAX [Concomitant]
     Indication: ARTHRITIS
     Dosage: ADHESIVE SKIN PATCH
     Route: 062
  18. MUCOSTA [Concomitant]
     Indication: STOMATITIS
     Route: 048
     Dates: start: 20080407
  19. TERRA-CORTRIL [Concomitant]
     Indication: ANAL ABSCESS
     Route: 061
     Dates: start: 20080303
  20. MAGMITT [Concomitant]
     Route: 048
     Dates: start: 20080122
  21. GLYCYRON [Concomitant]
     Route: 048

REACTIONS (2)
  - GINGIVITIS [None]
  - OSTEITIS [None]
